FAERS Safety Report 13963895 (Version 2)
Quarter: 2017Q3

REPORT INFORMATION
  Report Type: Spontaneous
  Country: US (occurrence: US)
  Receive Date: 20170913
  Receipt Date: 20170929
  Transmission Date: 20171128
  Serious: Yes (Hospitalization)
  Sender: FDA-Public Use
  Company Number: US-BAYER-2017-175104

PATIENT
  Sex: Female

DRUGS (1)
  1. MIRENA [Suspect]
     Active Substance: LEVONORGESTREL
     Indication: CONTRACEPTION
     Dosage: 20 MCG/24HR, CONT
     Route: 015
     Dates: start: 201211, end: 20131011

REACTIONS (8)
  - Pain [None]
  - Device issue [None]
  - Uterine perforation [None]
  - Gait inability [None]
  - Penile pain [None]
  - Dyspareunia [None]
  - Impaired work ability [None]
  - Depression [None]

NARRATIVE: CASE EVENT DATE: 201302
